FAERS Safety Report 9500592 (Version 1)
Quarter: 2013Q3

REPORT INFORMATION
  Report Type: Spontaneous
  Country: US (occurrence: US)
  Receive Date: 20130905
  Receipt Date: 20130905
  Transmission Date: 20140515
  Serious: Yes (Other)
  Sender: FDA-Public Use
  Company Number: US-FRI-1000048313

PATIENT
  Sex: Female

DRUGS (7)
  1. VIIBRYD [Suspect]
     Indication: DEPRESSION
     Dosage: 10MG
     Route: 048
     Dates: start: 2012, end: 2012
  2. VIIBRYD [Suspect]
     Indication: ANXIETY
     Dosage: 20MG
     Route: 048
     Dates: start: 2012, end: 2012
  3. VIIBRYD [Suspect]
     Dosage: 40MG
     Route: 048
     Dates: start: 2012, end: 2013
  4. VIIBRYD [Suspect]
     Indication: DEPRESSION
     Dosage: 40MG
     Route: 048
     Dates: start: 2013
  5. VIIBRYD [Suspect]
     Indication: ANXIETY
  6. SAVELLA [Concomitant]
     Indication: FIBROMYALGIA
     Dosage: 200MG
  7. TRAMADOL [Concomitant]
     Indication: BACK PAIN
     Dosage: 300MG

REACTIONS (1)
  - Suicidal ideation [Recovered/Resolved]
